FAERS Safety Report 6713942-9 (Version None)
Quarter: 2010Q2

REPORT INFORMATION
  Report Type: 
  Country: None (occurrence: None)
  Receive Date: 20100506
  Receipt Date: 20100429
  Transmission Date: 20101027
  Serious: Yes (Life-Threatening, Hospitalization)
  Sender: FDA-Public Use
  Company Number: JP-BRISTOL-MYERS SQUIBB COMPANY-14637383

PATIENT
  Age: 67 Year
  Sex: Male

DRUGS (7)
  1. APIXABAN [Suspect]
     Indication: THROMBOSIS PROPHYLAXIS
     Dosage: INTERRUPTED 21MAY09
     Route: 048
     Dates: start: 20090309, end: 20100101
  2. WARFARIN SODIUM [Suspect]
     Indication: THROMBOSIS PROPHYLAXIS
     Dosage: INTERRUPTED 21MAY09
     Route: 048
     Dates: start: 20090309, end: 20100101
  3. PLACEBO [Suspect]
     Indication: THROMBOSIS PROPHYLAXIS
     Dosage: INTERRUPTED 21MAY09
     Route: 048
     Dates: start: 20090309, end: 20100101
  4. ATORVASTATIN [Concomitant]
     Dates: start: 20080929, end: 20090520
  5. CARVEDILOL [Concomitant]
     Dates: start: 20081016
  6. IMIDAPRIL HCL [Concomitant]
     Dates: start: 20080916
  7. TORASEMIDE [Concomitant]
     Dates: start: 20081016

REACTIONS (12)
  - ALANINE AMINOTRANSFERASE INCREASED [None]
  - AORTIC DISSECTION [None]
  - AORTIC THROMBOSIS [None]
  - ASPARTATE AMINOTRANSFERASE INCREASED [None]
  - BLOOD LACTATE DEHYDROGENASE INCREASED [None]
  - BLOOD PRESSURE INCREASED [None]
  - CONTRAST MEDIA REACTION [None]
  - HAEMOTHORAX [None]
  - PNEUMONIA [None]
  - PNEUMONIA STAPHYLOCOCCAL [None]
  - RENAL FAILURE ACUTE [None]
  - THORACIC HAEMORRHAGE [None]
